FAERS Safety Report 5140612-3 (Version None)
Quarter: 2006Q4

REPORT INFORMATION
  Report Type: 
  Country: None (occurrence: None)
  Receive Date: 20061024
  Receipt Date: 20061004
  Transmission Date: 20070319
  Serious: Yes (Hospitalization)
  Sender: FDA-Public Use
  Company Number: JP200610002627

PATIENT
  Age: 72 Year
  Sex: Female

DRUGS (3)
  1. RALOXIFENE HCL [Suspect]
     Indication: OSTEOPOROSIS POSTMENOPAUSAL
     Dosage: 60 MG, DAILY (1/D),ORAL
     Route: 048
     Dates: start: 20050112, end: 20050204
  2. ELCITONIN (ELCATONIN) [Concomitant]
  3. ALFACALCIDOL (ALFACALCIDOL) [Concomitant]

REACTIONS (2)
  - FALL [None]
  - FRACTURE [None]
